FAERS Safety Report 6824669-7 (Version None)
Quarter: 2010Q3

REPORT INFORMATION
  Report Type: 
  Country: None (occurrence: None)
  Receive Date: 20100708
  Receipt Date: 20061110
  Transmission Date: 20110219
  Serious: No
  Sender: FDA-Public Use
  Company Number: US-PFIZER INC-2006140260

PATIENT
  Sex: Female
  Weight: 61.23 kg

DRUGS (4)
  1. CHANTIX [Suspect]
     Indication: EX-TOBACCO USER
     Dates: start: 20060101
  2. ALL OTHER THERAPEUTIC PRODUCTS [Concomitant]
  3. ASPIRIN [Concomitant]
  4. VAGIFEM [Concomitant]

REACTIONS (2)
  - INCREASED UPPER AIRWAY SECRETION [None]
  - THIRST [None]
